FAERS Safety Report 9352340 (Version 2)
Quarter: 2014Q1

REPORT INFORMATION
  Report Type: Spontaneous
  Country: IT (occurrence: IT)
  Receive Date: 20130617
  Receipt Date: 20140327
  Transmission Date: 20141002
  Serious: Yes (Hospitalization, Other)
  Sender: FDA-Public Use
  Company Number: IT-GILEAD-2013-0077256

PATIENT
  Age: 35 Year
  Sex: Male

DRUGS (3)
  1. TRUVADA [Suspect]
     Indication: ANTIRETROVIRAL THERAPY
     Dosage: UNK
     Route: 048
     Dates: start: 20130408, end: 20130420
  2. VIRAMUNE [Suspect]
     Indication: ANTIRETROVIRAL THERAPY
     Dosage: 400 MG, QD
     Route: 048
     Dates: start: 20130408, end: 20130420
  3. ALBENDAZOL [Concomitant]
     Indication: HELMINTHIC INFECTION
     Dosage: 800 MG, QD
     Route: 048
     Dates: start: 20130411, end: 20130418

REACTIONS (2)
  - Mental impairment [Recovered/Resolved]
  - Renal failure acute [Recovered/Resolved]
